FAERS Safety Report 7293875-2 (Version None)
Quarter: 2011Q1

REPORT INFORMATION
  Report Type: 
  Country: None (occurrence: None)
  Receive Date: 20110215
  Receipt Date: 20110207
  Transmission Date: 20110831
  Serious: Yes (Other)
  Sender: FDA-Public Use
  Company Number: US-B.I. PHARMACEUTICALS,INC./RIDGEFIELD-2010-BP-13890BP

PATIENT
  Age: 69 Year
  Sex: Female

DRUGS (5)
  1. TRICOR [Concomitant]
  2. MICARDIS HCT [Suspect]
     Dates: start: 20030101
  3. NORVASC [Concomitant]
  4. ZOCOR [Concomitant]
  5. ASPIRIN [Concomitant]

REACTIONS (3)
  - CARDIAC NEOPLASM UNSPECIFIED [None]
  - PERICARDIAL EFFUSION [None]
  - PULMONARY HYPERTENSION [None]
